FAERS Safety Report 9892819 (Version 1)
Quarter: 2014Q1

REPORT INFORMATION
  Report Type: Report from Study
  Country: US (occurrence: US)
  Receive Date: 20140213
  Receipt Date: 20140213
  Transmission Date: 20141002
  Serious: Yes (Death)
  Sender: FDA-Public Use
  Company Number: US-ROCHE-1318411

PATIENT
  Age: 66 Year
  Sex: Female
  Weight: 65.65 kg

DRUGS (5)
  1. AVASTIN [Suspect]
     Indication: OVARIAN CANCER
     Dosage: 15 MG/KG
     Route: 042
     Dates: start: 20111031, end: 20120103
  2. CARAFATE [Concomitant]
     Indication: BARRETT^S OESOPHAGUS
  3. LORAZEPAM [Concomitant]
     Indication: ANXIETY
  4. PANTOPRAZOLE [Concomitant]
     Indication: GASTROOESOPHAGEAL REFLUX DISEASE
  5. LORATAB [Concomitant]
     Indication: PAIN

REACTIONS (11)
  - Small intestinal obstruction [Fatal]
  - Intestinal perforation [Fatal]
  - Abdominal distension [Unknown]
  - Fatigue [Unknown]
  - Abdominal distension [Unknown]
  - Hypophagia [Unknown]
  - Nausea [Unknown]
  - Abdominal pain upper [Unknown]
  - Decreased appetite [Unknown]
  - Fatigue [Unknown]
  - Abdominal pain [Unknown]
